FAERS Safety Report 24276554 (Version 1)
Quarter: 2024Q3

REPORT INFORMATION
  Report Type: Spontaneous
  Country: ES (occurrence: ES)
  Receive Date: 20240903
  Receipt Date: 20240903
  Transmission Date: 20241016
  Serious: Yes (Life-Threatening, Hospitalization)
  Sender: RANBAXY
  Company Number: ES-SUN PHARMACEUTICAL INDUSTRIES LTD-2024RR-465499

PATIENT
  Age: 60 Year
  Sex: Male

DRUGS (2)
  1. SERTRALINE [Interacting]
     Active Substance: SERTRALINE HYDROCHLORIDE
     Indication: Depression
     Dosage: 1 TABLET EVERY 24H
     Route: 048
     Dates: start: 20210107
  2. MEPHEDRONE [Interacting]
     Active Substance: MEPHEDRONE
     Indication: Substance use
     Dosage: UNK
     Route: 040
     Dates: start: 20240517, end: 20240517

REACTIONS (2)
  - Seizure [Recovered/Resolved]
  - Hyponatraemia [Recovered/Resolved]

NARRATIVE: CASE EVENT DATE: 20240517
